FAERS Safety Report 15354929 (Version 1)
Quarter: 2018Q3

REPORT INFORMATION
  Report Type: Spontaneous
  Country: IE (occurrence: IE)
  Receive Date: 20180906
  Receipt Date: 20180906
  Transmission Date: 20181010
  Serious: Yes (Other)
  Sender: FDA-Public Use
  Company Number: IE-009507513-2010SP033344

PATIENT
  Age: 20 Year
  Sex: Female
  Weight: 64 kg

DRUGS (3)
  1. MICROLITE (ETHINYL ESTRADIOL (+) LEVONORGESTREL) [Concomitant]
     Indication: CONTRACEPTION
     Dosage: 100 MICROGRAMS LEVONORGESTREL/ 20 MICROGRAMS ETHINYLESTRADIOL
     Route: 048
     Dates: start: 200508
  2. IMPLANON [Suspect]
     Active Substance: ETONOGESTREL
     Indication: CONTRACEPTION
     Dosage: UNK
     Route: 058
     Dates: start: 20020117, end: 20061010
  3. ORTHO EVRA [Concomitant]
     Active Substance: ETHINYL ESTRADIOL\NORELGESTROMIN
     Indication: PRODUCT USED FOR UNKNOWN INDICATION
     Dosage: 1 DF, QW
     Route: 062
     Dates: start: 200508

REACTIONS (21)
  - Abdominal tenderness [Unknown]
  - Weight decreased [Unknown]
  - Lethargy [Unknown]
  - Pregnancy with implant contraceptive [Recovered/Resolved]
  - Fatigue [Unknown]
  - Metrorrhagia [Unknown]
  - Ligament sprain [Unknown]
  - Dizziness [Unknown]
  - Conjunctivitis [Unknown]
  - Menorrhagia [Unknown]
  - Constipation [Unknown]
  - Hypersensitivity [Unknown]
  - Incorrect drug administration duration [Recovered/Resolved with Sequelae]
  - Oral herpes [Unknown]
  - Dermatitis contact [Recovered/Resolved]
  - Implant site infection [Recovered/Resolved]
  - Abdominal pain [Unknown]
  - Urinary tract infection [Unknown]
  - Implant site scar [Not Recovered/Not Resolved]
  - Implant site reaction [Unknown]
  - Incorrect dose administered [Recovered/Resolved with Sequelae]

NARRATIVE: CASE EVENT DATE: 200302
